FAERS Safety Report 5960470-4 (Version None)
Quarter: 2008Q4

REPORT INFORMATION
  Report Type: 
  Country: None (occurrence: None)
  Receive Date: 20081118
  Receipt Date: 20081109
  Transmission Date: 20090506
  Serious: Yes (Life-Threatening, Hospitalization)
  Sender: FDA-Public Use
  Company Number: 1-16839950/MED-08212

PATIENT
  Age: 52 Year
  Sex: Female

DRUGS (2)
  1. AMITRIPTYLINE HCL [Suspect]
     Dosage: ORAL
     Route: 048
  2. OLANZAPINE [Concomitant]

REACTIONS (4)
  - BRUGADA SYNDROME [None]
  - COMA [None]
  - DRUG TOXICITY [None]
  - OVERDOSE [None]
